FAERS Safety Report 5088099-3 (Version None)
Quarter: 2006Q3

REPORT INFORMATION
  Report Type: 
  Country: None (occurrence: None)
  Receive Date: 20060823
  Receipt Date: 20060823
  Transmission Date: 20061208
  Serious: Yes (Hospitalization)
  Sender: FDA-Public Use
  Company Number: None

PATIENT
  Age: 68 Year
  Sex: Male
  Weight: 63.05 kg

DRUGS (13)
  1. BENADRYL [Suspect]
     Indication: ALLERGY TO ARTHROPOD BITE
     Dosage: 25-50 MG  Q 6 HR  PO
     Route: 048
     Dates: start: 20060702
  2. ACETAMIN 500 / HYDROCODONE 5 [Concomitant]
  3. DIGOXIN [Concomitant]
  4. WARFARIN [Concomitant]
  5. ENALAPRIL [Concomitant]
  6. FAMOTIDINE [Concomitant]
  7. MEGESTEROL [Concomitant]
  8. GABAPENTIN [Concomitant]
  9. METOPROLOL TARTRATE [Concomitant]
  10. TRAZODONE HCL [Concomitant]
  11. AMIODARONE HCL [Concomitant]
  12. M.V.I. [Concomitant]
  13. PREDNISONE [Suspect]
     Dosage: 20 MG DAILY

REACTIONS (4)
  - CONFUSIONAL STATE [None]
  - DELIRIUM [None]
  - DIALYSIS [None]
  - HALLUCINATION [None]
